APPROVED DRUG PRODUCT: NITROGLYCERIN
Active Ingredient: NITROGLYCERIN
Strength: 0.3MG
Dosage Form/Route: TABLET;SUBLINGUAL
Application: A209779 | Product #001 | TE Code: AB
Applicant: RUBICON RESEARCH LTD
Approved: May 3, 2021 | RLD: No | RS: No | Type: RX